FAERS Safety Report 10143184 (Version 1)
Quarter: 2014Q2

REPORT INFORMATION
  Report Type: Spontaneous
  Country: US (occurrence: None)
  Receive Date: 20140429
  Receipt Date: 20140429
  Transmission Date: 20141212
  Serious: Yes (Disabling)
  Sender: FDA-Public Use
  Company Number: None

PATIENT
  Age: 52 Year
  Sex: Female
  Weight: 58.06 kg

DRUGS (1)
  1. TAMIFLU 75MG GENENTECH [Suspect]
     Indication: INFLUENZA
     Dosage: 1 TABLET TWICE DAILY
     Route: 048
     Dates: start: 20140412, end: 20140414

REACTIONS (1)
  - Rash [None]
